FAERS Safety Report 8409714-X (Version None)
Quarter: 2012Q2

REPORT INFORMATION
  Report Type: 
  Country: None (occurrence: None)
  Receive Date: 20120605
  Receipt Date: 20120529
  Transmission Date: 20120825
  Serious: Yes (Hospitalization)
  Sender: FDA-Public Use
  Company Number: US-BAYER-2012-006918

PATIENT
  Age: 28 Year
  Sex: Female
  Weight: 58.957 kg

DRUGS (21)
  1. ZYRTEC-D 12 HOUR [Concomitant]
     Indication: NASAL DECONGESTION THERAPY
     Dosage: 5 MG-120 MG Q 12 HRS
     Route: 048
     Dates: start: 20101203
  2. ANTIBIOTICS [Concomitant]
     Route: 042
  3. ADDERALL 5 [Concomitant]
     Dosage: UNK
     Dates: start: 20090415, end: 20110502
  4. TRAMADOL HCL [Concomitant]
     Indication: HEADACHE
     Dosage: UNK
     Route: 048
     Dates: start: 20101213
  5. ALLERGY SHOTS [Concomitant]
     Indication: SEASONAL ALLERGY
     Dosage: UNK
     Dates: start: 20090101
  6. AMBIEN [Concomitant]
     Indication: INSOMNIA
     Dosage: UNK
     Route: 048
     Dates: start: 20100601
  7. CLINDAMYCIN [Concomitant]
     Indication: OTITIS MEDIA
     Dosage: 300 MG Q 6 HRS
     Route: 048
     Dates: start: 20101203
  8. YAZ [Suspect]
     Indication: CONTRACEPTION
     Dosage: UNK
     Route: 048
     Dates: start: 20090101, end: 20100801
  9. MORPHINE [Concomitant]
     Indication: PAIN
     Dosage: 10 MG, UNK
     Dates: start: 20101203
  10. ADVAIR DISKUS 100/50 [Concomitant]
  11. ADDERALL 5 [Concomitant]
     Indication: ATTENTION DEFICIT/HYPERACTIVITY DISORDER
     Dosage: UNK
     Route: 048
     Dates: start: 20080101
  12. DROSPIRENONE AND ETHINYL ESTRADIOL [Suspect]
     Indication: CONTRACEPTION
     Dosage: UNK
     Route: 048
     Dates: start: 20100801, end: 20101201
  13. PREDNISONE [Concomitant]
     Dosage: 20MG 2 A DAY FOR 3 DAYS THEN ONE DAILY FOR 4 DAYS
     Route: 048
     Dates: start: 20101124, end: 20101203
  14. IBUPROFEN [Concomitant]
     Indication: PAIN
     Dosage: 800 MG, UNK
     Route: 048
     Dates: start: 20101201, end: 20101203
  15. ACIPHEX [Concomitant]
     Dosage: UNK
     Route: 048
     Dates: start: 20100728
  16. AUGMENTIN [Concomitant]
     Indication: ACUTE SINUSITIS
     Dosage: 875 MG -125 MG ONE TAB Q 12 HRS.
     Route: 048
     Dates: start: 20101124
  17. FIORICET [Concomitant]
     Indication: HEADACHE
     Dosage: UNK
     Route: 048
     Dates: start: 20101213
  18. ALBUTEROL [Concomitant]
     Dosage: UNK
     Dates: start: 20080101, end: 20110101
  19. PREDNISONE [Concomitant]
     Dosage: UNK
     Route: 048
     Dates: start: 20101123, end: 20101130
  20. AMOXICILLIN AND CLAVULANATE POTASSIUM [Concomitant]
     Indication: EAR PAIN
     Dosage: 875 MG, BID
     Dates: start: 20101123, end: 20101218
  21. VICODIN [Concomitant]
     Indication: PAIN
     Dosage: 5MG-500MG Q4-6 HRS.
     Route: 048
     Dates: start: 20100601, end: 20101203

REACTIONS (4)
  - PAIN [None]
  - ANXIETY [None]
  - CEREBRAL VENOUS THROMBOSIS [None]
  - EMOTIONAL DISTRESS [None]
